FAERS Safety Report 5542586-X (Version None)
Quarter: 2007Q4

REPORT INFORMATION
  Report Type: 
  Country: None (occurrence: None)
  Receive Date: 20071205
  Receipt Date: 20071205
  Transmission Date: 20080405
  Serious: Yes (Life-Threatening, Hospitalization, Other)
  Sender: FDA-Public Use
  Company Number: None

PATIENT
  Age: 37 Year
  Sex: Female
  Weight: 62.1428 kg

DRUGS (1)
  1. ABILIFY [Suspect]
     Indication: BIPOLAR DISORDER
     Dosage: 20 MG  DAILY  PO
     Route: 048
     Dates: start: 20030801, end: 20071211

REACTIONS (4)
  - BODY TEMPERATURE DECREASED [None]
  - COMA [None]
  - KETOACIDOSIS [None]
  - TYPE 1 DIABETES MELLITUS [None]
